FAERS Safety Report 7380018-X (Version None)
Quarter: 2011Q1

REPORT INFORMATION
  Report Type: 
  Country: None (occurrence: None)
  Receive Date: 20110318
  Receipt Date: 20110310
  Transmission Date: 20110831
  Serious: Yes (Hospitalization)
  Sender: FDA-Public Use
  Company Number: AUR-APL-2011-00855

PATIENT
  Age: 83 Year
  Sex: Female

DRUGS (2)
  1. SIMVASTATIN [Suspect]
     Indication: HYPERLIPIDAEMIA
  2. CLARITHROMYCIN [Suspect]
     Indication: PNEUMONIA

REACTIONS (7)
  - MUSCULAR WEAKNESS [None]
  - PNEUMONIA [None]
  - MYALGIA [None]
  - DEHYDRATION [None]
  - BLOOD CREATINE PHOSPHOKINASE INCREASED [None]
  - HYPERCALCAEMIA [None]
  - MYOPATHY [None]
